FAERS Safety Report 5604984-5 (Version None)
Quarter: 2008Q1

REPORT INFORMATION
  Report Type: 
  Country: None (occurrence: None)
  Receive Date: 20080128
  Receipt Date: 20080104
  Transmission Date: 20080703
  Serious: No
  Sender: FDA-Public Use
  Company Number: US-BOEHRINGER INGELHEIM PHARMACEUTICALS, INC.-2007-BP-26166PF

PATIENT
  Age: 35 Year
  Sex: Male

DRUGS (6)
  1. SPIRIVA [Suspect]
     Indication: CHRONIC OBSTRUCTIVE PULMONARY DISEASE
     Route: 055
     Dates: start: 20060101
  2. PREDNISONE TAB [Concomitant]
  3. NEXIUM [Concomitant]
  4. ALBUTEROL [Concomitant]
  5. HIGH BLOOD PRESSURE PILLS [Concomitant]
  6. XANAX [Concomitant]

REACTIONS (1)
  - MUSCLE SPASMS [None]
